FAERS Safety Report 4844064-X (Version None)
Quarter: 2005Q4

REPORT INFORMATION
  Report Type: 
  Country: None (occurrence: None)
  Receive Date: 20051202
  Receipt Date: 20041102
  Transmission Date: 20060501
  Serious: Yes (Hospitalization, Disabling)
  Sender: FDA-Public Use
  Company Number: US-ROCHE-385293

PATIENT
  Age: 45 Year
  Sex: Male

DRUGS (3)
  1. LARIAM [Suspect]
     Indication: PROPHYLAXIS
     Route: 048
     Dates: start: 20020315, end: 20021215
  2. CIPRO [Concomitant]
     Indication: MALARIA PROPHYLAXIS
     Dates: start: 20020515, end: 20020915
  3. PRIMAQUINE [Concomitant]
     Indication: MALARIA PROPHYLAXIS
     Dates: start: 20021115, end: 20021215

REACTIONS (115)
  - ABNORMAL BEHAVIOUR [None]
  - ACQUIRED DIAPHRAGMATIC EVENTRATION [None]
  - ACUTE CORONARY SYNDROME [None]
  - AGGRESSION [None]
  - AGITATION [None]
  - AMNESIA [None]
  - ANTINUCLEAR ANTIBODY POSITIVE [None]
  - ANXIETY [None]
  - ASTHENIA [None]
  - ASTHMA [None]
  - ATTENTION DEFICIT/HYPERACTIVITY DISORDER [None]
  - BACTERIAL INFECTION [None]
  - BALANCE DISORDER [None]
  - BRONCHIAL HYPERACTIVITY [None]
  - BRONCHOPNEUMONIA [None]
  - BUNDLE BRANCH BLOCK RIGHT [None]
  - CARDIAC STRESS TEST ABNORMAL [None]
  - CHEST DISCOMFORT [None]
  - CHEST PAIN [None]
  - CHRONIC SINUSITIS [None]
  - COGNITIVE DISORDER [None]
  - CONDUCTION DISORDER [None]
  - CONTUSION [None]
  - CONVULSION [None]
  - CRANIAL NERVE DISORDER [None]
  - DEAFNESS [None]
  - DECREASED ACTIVITY [None]
  - DEHYDRATION [None]
  - DEPRESSION [None]
  - DEREALISATION [None]
  - DIFFICULTY IN WALKING [None]
  - DISSOCIATIVE DISORDER [None]
  - DISTURBANCE IN ATTENTION [None]
  - DIZZINESS [None]
  - DRUG EFFECT DECREASED [None]
  - DRUG TOXICITY [None]
  - DYSPNOEA [None]
  - DYSTHYMIC DISORDER [None]
  - ELECTROCARDIOGRAM ST SEGMENT ABNORMAL [None]
  - ELECTROENCEPHALOGRAM ABNORMAL [None]
  - EMOTIONAL DISORDER [None]
  - EOSINOPHILIA [None]
  - EXOSTOSIS [None]
  - EYE MOVEMENT DISORDER [None]
  - FALL [None]
  - FATIGUE [None]
  - GENERALISED ANXIETY DISORDER [None]
  - HAEMARTHROSIS [None]
  - HAEMOPHILUS INFECTION [None]
  - HALLUCINATION, VISUAL [None]
  - HEADACHE [None]
  - HIATUS HERNIA [None]
  - HOMICIDAL IDEATION [None]
  - HUMERUS FRACTURE [None]
  - HYPERHIDROSIS [None]
  - HYPERKERATOSIS [None]
  - HYPERTENSION [None]
  - HYPERVIGILANCE [None]
  - HYPOAESTHESIA [None]
  - ILL-DEFINED DISORDER [None]
  - IMPULSIVE BEHAVIOUR [None]
  - INJURY [None]
  - INSOMNIA [None]
  - JOINT DISLOCATION [None]
  - LIGAMENT SPRAIN [None]
  - LOSS OF CONSCIOUSNESS [None]
  - MAJOR DEPRESSION [None]
  - MARITAL PROBLEM [None]
  - MEMORY IMPAIRMENT [None]
  - MENISCUS LESION [None]
  - MENTAL IMPAIRMENT [None]
  - MITRAL VALVE CALCIFICATION [None]
  - MITRAL VALVE INCOMPETENCE [None]
  - MOOD SWINGS [None]
  - MUSCULOSKELETAL STIFFNESS [None]
  - MYALGIA [None]
  - NIGHTMARE [None]
  - NOCTURIA [None]
  - NYSTAGMUS [None]
  - OXYGEN SATURATION DECREASED [None]
  - PALPITATIONS [None]
  - PANIC ATTACK [None]
  - PANIC DISORDER [None]
  - PARANOIA [None]
  - POST-TRAUMATIC STRESS DISORDER [None]
  - PRIAPISM [None]
  - PRODUCTIVE COUGH [None]
  - PSYCHIATRIC SYMPTOM [None]
  - PSYCHOTIC DISORDER [None]
  - PYREXIA [None]
  - RAPID EYE MOVEMENTS SLEEP ABNORMAL [None]
  - RASH [None]
  - RASH PAPULAR [None]
  - RESPIRATORY RATE INCREASED [None]
  - RHEUMATOID FACTOR INCREASED [None]
  - RHINITIS ALLERGIC [None]
  - SELECTIVE IGA IMMUNODEFICIENCY [None]
  - SELF-INJURIOUS IDEATION [None]
  - SHOULDER PAIN [None]
  - SLEEP APNOEA SYNDROME [None]
  - SNORING [None]
  - SOMNOLENCE [None]
  - STRESS [None]
  - SUICIDAL IDEATION [None]
  - THINKING ABNORMAL [None]
  - TINNITUS [None]
  - TREMOR [None]
  - UPPER RESPIRATORY TRACT INFECTION [None]
  - VENTRICULAR EXTRASYSTOLES [None]
  - VERTIGO [None]
  - VESTIBULAR DISORDER [None]
  - VISION BLURRED [None]
  - VISUAL ACUITY REDUCED [None]
  - VISUAL DISTURBANCE [None]
  - WEIGHT DECREASED [None]
